FAERS Safety Report 8900576 (Version 1)
Quarter: 2012Q4

REPORT INFORMATION
  Report Type: 
  Country: US (occurrence: US)
  Receive Date: 20121109
  Receipt Date: 20121109
  Transmission Date: 20130627
  Serious: No
  Sender: FDA-Public Use
  Company Number: US-009507513-1211USA000102

PATIENT
  Age: 41 Year
  Sex: Female

DRUGS (5)
  1. MAXALT [Suspect]
     Indication: MIGRAINE
     Dosage: 1 DF, Once
     Route: 048
     Dates: start: 20121024, end: 20121024
  2. SYNTHROID [Concomitant]
  3. HORMONAL CONTRACEPTIVES (UNSPECIFIED) [Concomitant]
  4. CORTICOSTEROIDS (UNSPECIFIED) [Concomitant]
     Dosage: UNK
     Dates: start: 20121024, end: 20121029
  5. AMOXICILLIN [Concomitant]

REACTIONS (2)
  - Loss of control of legs [Not Recovered/Not Resolved]
  - Hypoaesthesia [Not Recovered/Not Resolved]
